FAERS Safety Report 5646147-3 (Version None)
Quarter: 2008Q1

REPORT INFORMATION
  Report Type: 
  Country: None (occurrence: None)
  Receive Date: 20080227
  Receipt Date: 20080212
  Transmission Date: 20080703
  Serious: Yes (Hospitalization)
  Sender: FDA-Public Use
  Company Number: B0509167A

PATIENT
  Age: 34 Year
  Sex: Male

DRUGS (1)
  1. ATOVAQUONE/PROGUANIL HCL TABLET (ATOVAQUONE/PROGUANIL HCL) [Suspect]
     Indication: MALARIA PROPHYLAXIS
     Dosage: 4 TABLET / PER DAY / ORAL
     Route: 048

REACTIONS (2)
  - DRUG INEFFECTIVE [None]
  - MALARIA [None]
